FAERS Safety Report 6044462-5 (Version None)
Quarter: 2009Q1

REPORT INFORMATION
  Report Type: 
  Country: None (occurrence: None)
  Receive Date: 20090115
  Receipt Date: 20090115
  Transmission Date: 20090719
  Serious: Yes (Other)
  Sender: FDA-Public Use
  Company Number: None

PATIENT
  Sex: Female
  Weight: 57.27 kg

DRUGS (8)
  1. EVOXAC [Suspect]
     Dosage: 30MG CAPSULE 30 MG TID ORAL
     Route: 048
     Dates: start: 20080403, end: 20090115
  2. ALBUTEROL [Concomitant]
  3. CLOBETASOL SCALP SOLUTION [Concomitant]
  4. NIFEDIPINE [Concomitant]
  5. PATANOL [Concomitant]
  6. SALAGEN [Concomitant]
  7. SIMVASTATIN [Concomitant]
  8. SPECTAZOLE [Concomitant]

REACTIONS (2)
  - ARRHYTHMIA [None]
  - ELECTROCARDIOGRAM ABNORMAL [None]
